FAERS Safety Report 10873863 (Version 5)
Quarter: 2015Q2

REPORT INFORMATION
  Report Type: Spontaneous
  Country: US (occurrence: US)
  Receive Date: 20150227
  Receipt Date: 20150508
  Transmission Date: 20150821
  Serious: Yes (Hospitalization, Other)
  Sender: FDA-Public Use
  Company Number: US-SA-2015SA022611

PATIENT
  Age: 67 Year
  Sex: Female
  Weight: 76.2 kg

DRUGS (22)
  1. REMODULIN [Suspect]
     Active Substance: TREPROSTINIL
     Indication: PULMONARY HYPERTENSION
     Dosage: DOSE + FREQ: 0.0524MCG/KG/MIN?STRENGTH: 5MG/ML
     Route: 041
  2. ZAROXOLYN [Suspect]
     Active Substance: METOLAZONE
     Route: 065
  3. OPSUMIT [Concomitant]
     Active Substance: MACITENTAN
     Route: 048
  4. VITAMIN C [Concomitant]
     Active Substance: ASCORBIC ACID
  5. DIGOXIN. [Concomitant]
     Active Substance: DIGOXIN
     Route: 048
  6. REMODULIN [Suspect]
     Active Substance: TREPROSTINIL
     Indication: PULMONARY HYPERTENSION
     Dosage: DOSE + FREQ: 0.0524MCG/KG/MIN?STRENGTH: 5MG/ML
     Route: 041
     Dates: start: 20131213
  7. ADCIRCA [Suspect]
     Active Substance: TADALAFIL
     Route: 048
     Dates: end: 201502
  8. FAMOTIDINE. [Concomitant]
     Active Substance: FAMOTIDINE
     Route: 048
  9. PROTONIX [Concomitant]
     Active Substance: PANTOPRAZOLE SODIUM
  10. SYNTHROID [Concomitant]
     Active Substance: LEVOTHYROXINE SODIUM
     Route: 048
  11. KLOR-CON [Concomitant]
     Active Substance: POTASSIUM CHLORIDE
     Dosage: M20 20 MEQ TBCR
  12. OXYCODONE HYDROCHLORIDE. [Concomitant]
     Active Substance: OXYCODONE HYDROCHLORIDE
     Dosage: 1 EVERY 4-6 HOURS AS NEEDED
     Route: 048
  13. REMODULIN [Suspect]
     Active Substance: TREPROSTINIL
     Indication: PULMONARY HYPERTENSION
     Dosage: DOSE + FREQ: 0.0524MCG/KG/MIN?STRENGTH: 5MG/ML
     Route: 041
  14. ADCIRCA [Suspect]
     Active Substance: TADALAFIL
     Route: 048
  15. FLUTICASONE PROPIONATE. [Concomitant]
     Active Substance: FLUTICASONE PROPIONATE
  16. LASIX [Suspect]
     Active Substance: FUROSEMIDE
     Dosage: START DATE: TOWARDS YEAR END (END OF 2014)
     Route: 048
     Dates: start: 2014, end: 20141209
  17. ASPIRIN. [Concomitant]
     Active Substance: ASPIRIN
     Route: 048
  18. SILYBUM MARIANUM [Concomitant]
     Route: 048
  19. TETRYZOLINE HYDROCHLORIDE [Suspect]
     Active Substance: TETRAHYDROZOLINE HYDROCHLORIDE
     Dosage: DOSE- 0.05-0.25% SOLUTION
     Route: 065
  20. DULERA [Concomitant]
     Active Substance: FORMOTEROL FUMARATE DIHYDRATE\MOMETASONE FUROATE
     Dosage: 100-5 MCG
  21. SPIRONOLACTONE. [Concomitant]
     Active Substance: SPIRONOLACTONE
     Route: 048
  22. ZOLOFT [Concomitant]
     Active Substance: SERTRALINE HYDROCHLORIDE
     Route: 048

REACTIONS (14)
  - Deep vein thrombosis [Unknown]
  - Nasal congestion [Unknown]
  - Weight decreased [Unknown]
  - Oedema peripheral [Unknown]
  - Blood pressure decreased [Unknown]
  - Post procedural discharge [Unknown]
  - Skin ulcer [Unknown]
  - Thrombosis [Unknown]
  - Weight increased [Unknown]
  - Dyspnoea [Unknown]
  - Sleep apnoea syndrome [Unknown]
  - Cellulitis [Unknown]
  - Ascites [Unknown]
  - Chest pain [Unknown]

NARRATIVE: CASE EVENT DATE: 2014
